FAERS Safety Report 8558275-3 (Version None)
Quarter: 2012Q3

REPORT INFORMATION
  Report Type: 
  Country: None (occurrence: None)
  Receive Date: 20120727
  Receipt Date: 20120727
  Transmission Date: 20120928
  Serious: Yes (Hospitalization)
  Sender: FDA-Public Use
  Company Number: None

PATIENT
  Age: 81 Year
  Sex: Female
  Weight: 57.3 kg

DRUGS (18)
  1. MAG OX [Concomitant]
  2. COZAAR [Concomitant]
  3. DUONEB [Concomitant]
  4. OXYBUTNIN [Concomitant]
  5. FORTEO [Concomitant]
  6. FLONASE [Concomitant]
  7. ACETYLSALICYLIC ACID SRT [Suspect]
     Indication: CORONARY ARTERY DISEASE
     Dosage: 81 MG DAILY PO CHRONIC
     Route: 048
  8. PERCOCET [Concomitant]
  9. LASIX [Concomitant]
  10. LEVOXYL [Concomitant]
  11. CALCIUM CARBONATE [Concomitant]
  12. POTASSIUM GLUCONATE TAB [Concomitant]
  13. DRUG ILLEGIBLE [Concomitant]
  14. VIT D3 [Concomitant]
  15. COREG [Concomitant]
  16. PRILOSEC [Concomitant]
  17. FENTANYL [Concomitant]
  18. TESSALON [Concomitant]

REACTIONS (5)
  - GASTRITIS EROSIVE [None]
  - GASTROINTESTINAL ARTERIOVENOUS MALFORMATION [None]
  - HAEMOGLOBIN DECREASED [None]
  - HIATUS HERNIA [None]
  - UPPER GASTROINTESTINAL HAEMORRHAGE [None]
